FAERS Safety Report 9262993 (Version 1)
Quarter: 2013Q2

REPORT INFORMATION
  Report Type: Spontaneous
  Country: US (occurrence: US)
  Receive Date: 20130430
  Receipt Date: 20130430
  Transmission Date: 20140414
  Serious: Yes (Hospitalization)
  Sender: FDA-Public Use
  Company Number: US-BAYER-2013-052868

PATIENT
  Age: 33 Year
  Sex: Female
  Weight: 88 kg

DRUGS (11)
  1. YASMIN [Suspect]
  2. CELEBREX [Concomitant]
     Dosage: 200 MG, UNK
     Route: 048
  3. HYDROCODONE W/APAP [Concomitant]
     Dosage: 5 MG/500 MG,
     Route: 048
  4. LORAZEPAM [Concomitant]
     Dosage: 0.5 MG, UNK
     Route: 048
  5. PROZAC [Concomitant]
     Dosage: 40 MG, UNK
     Route: 048
  6. FLUOXETINE [Concomitant]
     Dosage: 40 MG, UNK
     Route: 048
  7. TRAZODONE [Concomitant]
     Dosage: 50 MG, UNK
     Route: 048
  8. VALIUM [Concomitant]
     Indication: MUSCLE SPASMS
     Dosage: 10 MG, TID AS NEEDED
     Route: 048
  9. DIAZEPAM [Concomitant]
     Indication: MUSCLE SPASMS
     Dosage: 10 MG, TID AS NEEDED
  10. WELLBUTRIN [Concomitant]
     Dosage: 200 MG, UNK
     Route: 048
  11. ALLEGRA [Concomitant]

REACTIONS (1)
  - Pulmonary embolism [None]
